APPROVED DRUG PRODUCT: NAROPIN
Active Ingredient: ROPIVACAINE HYDROCHLORIDE
Strength: 50MG/10ML (5MG/ML) **Federal Register determination that product was not discontinued or withdrawn for safety or effectiveness reasons**
Dosage Form/Route: SOLUTION;INJECTION
Application: N020533 | Product #013
Applicant: FRESENIUS KABI USA LLC
Approved: May 1, 1998 | RLD: Yes | RS: No | Type: DISCN